FAERS Safety Report 6154729-8 (Version None)
Quarter: 2009Q2

REPORT INFORMATION
  Report Type: 
  Country: None (occurrence: None)
  Receive Date: 20090414
  Receipt Date: 20090409
  Transmission Date: 20091009
  Serious: Yes (Hospitalization)
  Sender: FDA-Public Use
  Company Number: A0778571A

PATIENT
  Sex: Female
  Weight: 45 kg

DRUGS (2)
  1. SERETIDE [Suspect]
     Indication: CHRONIC OBSTRUCTIVE PULMONARY DISEASE
     Dosage: 3PUFF TWICE PER DAY
     Dates: start: 20060101
  2. BAMIFIX [Concomitant]
     Dates: start: 20060101

REACTIONS (4)
  - ASTHENIA [None]
  - DIZZINESS [None]
  - PAIN [None]
  - PNEUMONIA [None]
